FAERS Safety Report 14251927 (Version 3)
Quarter: 2018Q1

REPORT INFORMATION
  Report Type: Spontaneous
  Country: JP (occurrence: JP)
  Receive Date: 20171205
  Receipt Date: 20180102
  Transmission Date: 20180508
  Serious: Yes (Other)
  Sender: FDA-Public Use
  Company Number: JP-NAPPMUNDI-GBR-2017-0051223

PATIENT
  Age: 84 Year
  Sex: Male

DRUGS (8)
  1. OXINORM (OXYCODONE HYDROCHLORIDE) [Suspect]
     Active Substance: OXYCODONE HYDROCHLORIDE
     Dosage: 2.5 MG, PRN
     Route: 048
     Dates: start: 20171101, end: 20171107
  2. NOVAMIN                            /00013301/ [Concomitant]
     Active Substance: PROCHLORPERAZINE
     Indication: PROPHYLAXIS
     Dosage: 10 MG, DAILY
     Route: 048
     Dates: start: 20171101, end: 20171104
  3. MAGNESIUM OXIDE. [Concomitant]
     Active Substance: MAGNESIUM OXIDE
     Indication: PROPHYLAXIS
     Dosage: 990 MG, DAILY
     Route: 048
     Dates: start: 20171101
  4. AMLODIPINE [Concomitant]
     Active Substance: AMLODIPINE BESYLATE
     Indication: HYPERTENSION
     Dosage: 5 MG, DAILY
     Route: 048
  5. OXYCONTIN [Suspect]
     Active Substance: OXYCODONE HYDROCHLORIDE
     Indication: CANCER PAIN
     Dosage: 5 MG, BID
     Route: 048
     Dates: start: 20171101, end: 20171108
  6. LOXONIN [Concomitant]
     Active Substance: LOXOPROFEN SODIUM
     Indication: LUNG NEOPLASM MALIGNANT
     Dosage: 180 MG, DAILY
     Route: 048
     Dates: end: 20171108
  7. FLIVAS [Concomitant]
     Active Substance: NAFTOPIDIL
     Indication: BENIGN PROSTATIC HYPERPLASIA
     Dosage: 50 MG, DAILY
     Route: 048
     Dates: start: 20171107, end: 20171108
  8. OXINORM (OXYCODONE HYDROCHLORIDE) [Suspect]
     Active Substance: OXYCODONE HYDROCHLORIDE
     Indication: CANCER PAIN
     Dosage: 7.5 MG, DAILY
     Route: 048
     Dates: start: 20171108, end: 20171121

REACTIONS (4)
  - Somnolence [Recovered/Resolved]
  - Delirium [Recovered/Resolved]
  - Pneumonia [Recovered/Resolved]
  - Urinary retention [Recovered/Resolved]

NARRATIVE: CASE EVENT DATE: 20171103
